FAERS Safety Report 5915678-0 (Version None)
Quarter: 2008Q4

REPORT INFORMATION
  Report Type: 
  Country: None (occurrence: None)
  Receive Date: 20081010
  Receipt Date: 20080930
  Transmission Date: 20090506
  Serious: Yes (Death, Hospitalization)
  Sender: FDA-Public Use
  Company Number: NO-ASTRAZENECA-2008SE03986

PATIENT
  Age: 69 Year
  Sex: Male
  Weight: 71 kg

DRUGS (5)
  1. NEXIUM [Suspect]
     Indication: DYSPEPSIA
     Route: 048
     Dates: start: 20080530, end: 20080603
  2. APROVEL [Concomitant]
     Route: 048
     Dates: end: 20080603
  3. LIPITOR [Concomitant]
     Indication: HYPERCHOLESTEROLAEMIA
     Route: 048
     Dates: start: 20000101, end: 20080603
  4. EZETROL [Concomitant]
     Route: 048
     Dates: start: 20080101, end: 20080603
  5. FORTODOL [Concomitant]
     Route: 048
     Dates: start: 20071201, end: 20080603

REACTIONS (3)
  - HEPATIC FAILURE [None]
  - HEPATIC NECROSIS [None]
  - RENAL FAILURE [None]
